FAERS Safety Report 5782764-8 (Version None)
Quarter: 2008Q2

REPORT INFORMATION
  Report Type: 
  Country: None (occurrence: None)
  Receive Date: 20080619
  Receipt Date: 20080619
  Transmission Date: 20081010
  Serious: No
  Sender: FDA-Public Use
  Company Number: None

PATIENT
  Age: 66 Year
  Sex: Female
  Weight: 86.1834 kg

DRUGS (1)
  1. DIGITEK 0.125 MADE BY BERTEK [Suspect]
     Indication: CARDIAC FAILURE
     Dosage: 0.125 1 X DAY
     Dates: start: 20080214

REACTIONS (9)
  - ANOREXIA [None]
  - DEPRESSION [None]
  - DISORIENTATION [None]
  - DIZZINESS [None]
  - HALO VISION [None]
  - HEART RATE DECREASED [None]
  - PAIN [None]
  - SOMNOLENCE [None]
  - VISION BLURRED [None]
